FAERS Safety Report 13556134 (Version 1)
Quarter: 2017Q2

REPORT INFORMATION
  Report Type: Spontaneous
  Country: US (occurrence: US)
  Receive Date: 20170517
  Receipt Date: 20170517
  Transmission Date: 20170830
  Serious: No
  Sender: FDA-Public Use
  Company Number: US-SA-2016SA224086

PATIENT
  Age: 74 Year
  Sex: Female

DRUGS (11)
  1. CHOLECALCIFEROL [Concomitant]
     Active Substance: CHOLECALCIFEROL
     Dosage: DOSE:2000 UNIT(S)
     Route: 048
  2. TOUJEO [Suspect]
     Active Substance: INSULIN GLARGINE
     Indication: TYPE 2 DIABETES MELLITUS
     Dosage: DOSE:35 UNIT(S)
     Route: 065
     Dates: start: 20161205, end: 20161206
  3. HUMALOG [Concomitant]
     Active Substance: INSULIN LISPRO
  4. FUROSEMIDE. [Concomitant]
     Active Substance: FUROSEMIDE
     Dosage: STRENGTH : 20 MG
  5. LOSARTAN. [Concomitant]
     Active Substance: LOSARTAN
     Dosage: STRENGTH : 100 M G
  6. METFORMIN [Concomitant]
     Active Substance: METFORMIN HYDROCHLORIDE
     Dosage: STRENGTH : 1000 MG
  7. LANTUS [Concomitant]
     Active Substance: INSULIN GLARGINE
     Dosage: DOSE:35 UNIT(S)
  8. ASPIRIN. [Concomitant]
     Active Substance: ASPIRIN
     Dosage: STRENGTH : 81 MG
  9. SOLOSTAR [Concomitant]
     Active Substance: DEVICE
     Indication: TYPE 2 DIABETES MELLITUS
     Dates: start: 20161205, end: 20161206
  10. CARVEDILOL. [Concomitant]
     Active Substance: CARVEDILOL
     Dosage: STRENGTH : 25 MG
  11. ATORVASTATIN [Concomitant]
     Active Substance: ATORVASTATIN
     Dosage: STRENGTH : 80 MG

REACTIONS (5)
  - Chills [Unknown]
  - Diarrhoea [Unknown]
  - Nausea [Unknown]
  - Blood glucose increased [Unknown]
  - Vomiting [Unknown]

NARRATIVE: CASE EVENT DATE: 20161205
